FAERS Safety Report 8574809-7 (Version None)
Quarter: 2012Q3

REPORT INFORMATION
  Report Type: 
  Country: None (occurrence: None)
  Receive Date: 20120807
  Receipt Date: 20120802
  Transmission Date: 20120928
  Serious: Yes (Death, Other)
  Sender: FDA-Public Use
  Company Number: US-009507513-1205USA04633

PATIENT

DRUGS (4)
  1. ZOFRAN [Concomitant]
  2. VORINOSTAT [Suspect]
     Dosage: 400 MG, QD
     Route: 048
     Dates: start: 20120518, end: 20120520
  3. VORINOSTAT [Suspect]
     Indication: ACUTE MYELOID LEUKAEMIA
     Dosage: 400 MG, QD
     Route: 048
     Dates: start: 20120427, end: 20120510
  4. VELCADE [Suspect]
     Indication: ACUTE MYELOID LEUKAEMIA
     Dosage: 2025 MG, QD
     Route: 058
     Dates: start: 20120427, end: 20120521

REACTIONS (1)
  - CARDIO-RESPIRATORY ARREST [None]
